FAERS Safety Report 8184272-6 (Version None)
Quarter: 2012Q1

REPORT INFORMATION
  Report Type: 
  Country: None (occurrence: None)
  Receive Date: 20120305
  Receipt Date: 20120228
  Transmission Date: 20120608
  Serious: Yes (Hospitalization, Other)
  Sender: FDA-Public Use
  Company Number: BR-ABBOTT-12P-020-0890818-00

PATIENT
  Sex: Male
  Weight: 55 kg

DRUGS (3)
  1. MESALAZINA [Concomitant]
  2. MESALAZINA [Concomitant]
     Indication: PRODUCT USED FOR UNKNOWN INDICATION
     Dates: start: 20111201, end: 20120213
  3. HUMIRA [Suspect]
     Indication: CROHN'S DISEASE
     Route: 058
     Dates: start: 20111226

REACTIONS (3)
  - ABDOMINAL PAIN [None]
  - HYPERPHAGIA [None]
  - ABDOMINAL DISTENSION [None]
